FAERS Safety Report 21608838 (Version 1)
Quarter: 2022Q4

REPORT INFORMATION
  Report Type: Spontaneous
  Country: SD (occurrence: SD)
  Receive Date: 20221117
  Receipt Date: 20221117
  Transmission Date: 20230112
  Serious: Yes (Disabling, Other)
  Sender: FDA-Public Use
  Company Number: SD-Hikma Pharmaceuticals-SD-H14001-22-02935

PATIENT
  Age: 25 Year
  Sex: Male

DRUGS (5)
  1. AMIKACIN [Suspect]
     Active Substance: AMIKACIN
     Indication: Botryomycosis
     Route: 065
     Dates: start: 201406
  2. AMOXICILLIN\CLAVULANIC ACID [Suspect]
     Active Substance: AMOXICILLIN\CLAVULANIC ACID
     Indication: Botryomycosis
     Dosage: UNKNOWN
     Route: 065
  3. SULFAMETHOXAZOLE\TRIMETHOPRIM [Suspect]
     Active Substance: SULFAMETHOXAZOLE\TRIMETHOPRIM
     Indication: Botryomycosis
     Route: 065
     Dates: start: 201406
  4. SULFAMETHOXAZOLE\TRIMETHOPRIM [Suspect]
     Active Substance: SULFAMETHOXAZOLE\TRIMETHOPRIM
     Dosage: UNKNOWN
     Route: 065
     Dates: start: 2017
  5. FOLIC ACID [Concomitant]
     Active Substance: FOLIC ACID
     Indication: Botryomycosis
     Route: 065
     Dates: start: 201406

REACTIONS (2)
  - Pathogen resistance [Not Recovered/Not Resolved]
  - Foot amputation [Not Recovered/Not Resolved]

NARRATIVE: CASE EVENT DATE: 20191216
